FAERS Safety Report 12985914 (Version 1)
Quarter: 2016Q4

REPORT INFORMATION
  Report Type: Spontaneous
  Country: CA (occurrence: CA)
  Receive Date: 20161130
  Receipt Date: 20161130
  Transmission Date: 20170207
  Serious: Yes (Other)
  Sender: FDA-Public Use
  Company Number: CA-APOTEX-2016AP015108

PATIENT

DRUGS (1)
  1. APO-OLANZAPINE [Suspect]
     Active Substance: OLANZAPINE
     Indication: PROPHYLAXIS OF NAUSEA AND VOMITING
     Dosage: 0.14 MG/KG/DOSE, QD
     Route: 048

REACTIONS (1)
  - Vision blurred [Unknown]
